FAERS Safety Report 6501760-6 (Version None)
Quarter: 2009Q4

REPORT INFORMATION
  Report Type: 
  Country: None (occurrence: None)
  Receive Date: 20091216
  Receipt Date: 20091207
  Transmission Date: 20100525
  Serious: Yes (Other)
  Sender: FDA-Public Use
  Company Number: FR-PFIZER INC-2009306458

PATIENT
  Age: 28 Year
  Sex: Female

DRUGS (2)
  1. CYTOTEC [Suspect]
     Indication: ABORTION INDUCED
     Dosage: 400 UG, 1X/DAY
     Route: 067
     Dates: start: 20090925, end: 20090925
  2. MIFEGYNE [Suspect]
     Indication: ABORTION INDUCED
     Dosage: 600 MG, 1X/DAY
     Route: 048
     Dates: start: 20090923, end: 20090923

REACTIONS (3)
  - DRUG INEFFECTIVE FOR UNAPPROVED INDICATION [None]
  - INCORRECT ROUTE OF DRUG ADMINISTRATION [None]
  - INTENTIONAL DRUG MISUSE [None]
